FAERS Safety Report 15636224 (Version 1)
Quarter: 2018Q4

REPORT INFORMATION
  Report Type: Spontaneous
  Country: JP (occurrence: JP)
  Receive Date: 20181120
  Receipt Date: 20181120
  Transmission Date: 20190205
  Serious: Yes (Hospitalization)
  Sender: FDA-Public Use
  Company Number: JP-TEVA-2018-JP-977195

PATIENT
  Age: 65 Year
  Sex: Male

DRUGS (8)
  1. OFLOXACIN. [Suspect]
     Active Substance: OFLOXACIN
     Indication: ENDOPHTHALMITIS
     Route: 047
  2. PENICILLIN G [Suspect]
     Active Substance: PENICILLIN G
     Indication: ENDOPHTHALMITIS
     Dosage: 18 MU DAILY;
     Route: 065
  3. GENTAMICIN. [Suspect]
     Active Substance: GENTAMICIN
     Indication: ENDOPHTHALMITIS
     Dosage: 180 MILLIGRAM DAILY;
     Route: 065
  4. CEFTAZIDIME. [Suspect]
     Active Substance: CEFTAZIDIME
     Indication: ENDOPHTHALMITIS
     Route: 050
  5. LEVOFLOXACIN. [Suspect]
     Active Substance: LEVOFLOXACIN
     Indication: ENDOPHTHALMITIS
     Route: 047
  6. CEFTRIAXONE. [Suspect]
     Active Substance: CEFTRIAXONE
     Indication: ENDOPHTHALMITIS
     Dosage: 2 GRAM DAILY;
     Route: 065
  7. AMPICILLIN [Suspect]
     Active Substance: AMPICILLIN
     Indication: ENDOPHTHALMITIS
     Dosage: 8 GRAM DAILY;
     Route: 065
  8. VANCOMYCIN [Suspect]
     Active Substance: VANCOMYCIN
     Indication: ENDOPHTHALMITIS
     Route: 050

REACTIONS (1)
  - Drug ineffective [Unknown]
